FAERS Safety Report 13669300 (Version 1)
Quarter: 2017Q2

REPORT INFORMATION
  Report Type: Report from Study
  Country: CO (occurrence: CO)
  Receive Date: 20170620
  Receipt Date: 20170620
  Transmission Date: 20170830
  Serious: Yes (Hospitalization)
  Sender: FDA-Public Use
  Company Number: PHHY2017CO003612

PATIENT
  Age: 49 Year
  Sex: Male
  Weight: 59 kg

DRUGS (1)
  1. COSENTYX [Suspect]
     Active Substance: SECUKINUMAB
     Indication: PSORIATIC ARTHROPATHY
     Dosage: 300 MG, QMO
     Route: 058
     Dates: start: 20161220

REACTIONS (5)
  - Arthritis [Unknown]
  - Arthritis infective [Unknown]
  - Arthralgia [Not Recovered/Not Resolved]
  - Abdominal injury [Unknown]
  - Inflammation [Unknown]

NARRATIVE: CASE EVENT DATE: 20161231
